FAERS Safety Report 8991421 (Version 2)
Quarter: 2013Q3

REPORT INFORMATION
  Report Type: Spontaneous
  Country: IL (occurrence: IL)
  Receive Date: 20121228
  Receipt Date: 20130816
  Transmission Date: 20140515
  Serious: Yes (Hospitalization)
  Sender: FDA-Public Use
  Company Number: IL-VERTEX PHARMACEUTICALS INC.-2012-026763

PATIENT
  Age: 26 Year
  Sex: Female

DRUGS (2)
  1. INCIVO [Suspect]
     Indication: PRODUCT USED FOR UNKNOWN INDICATION
     Dosage: UNK
     Route: 048
  2. INCIVO [Suspect]
     Route: 048

REACTIONS (1)
  - Gastroenteritis viral [Recovered/Resolved]
